FAERS Safety Report 5366671-0 (Version None)
Quarter: 2007Q2

REPORT INFORMATION
  Report Type: 
  Country: None (occurrence: None)
  Receive Date: 20070622
  Receipt Date: 20060419
  Transmission Date: 20071010
  Serious: No
  Sender: FDA-Public Use
  Company Number: US-ASTRAZENECA-2006UW06934

PATIENT
  Age: 78 Year
  Sex: Female
  Weight: 53.1 kg

DRUGS (2)
  1. RHINOCORT [Suspect]
     Route: 045
     Dates: start: 20060418
  2. ACETYLSALICYLIC ACID SRT [Concomitant]

REACTIONS (3)
  - DIARRHOEA [None]
  - NAUSEA [None]
  - PHARYNGOLARYNGEAL PAIN [None]
